FAERS Safety Report 8610622-X (Version None)
Quarter: 2012Q3

REPORT INFORMATION
  Report Type: 
  Country: None (occurrence: None)
  Receive Date: 20120423
  Receipt Date: 20100706
  Transmission Date: 20120928
  Serious: Yes (Other)
  Sender: FDA-Public Use
  Company Number: PHHY2010US44504

PATIENT
  Age: 85 Year
  Sex: Female

DRUGS (10)
  1. BENICAR [Concomitant]
  2. AMITRIPTYLINE HCL [Concomitant]
  3. SYNTHROID [Concomitant]
  4. DARVOCET-N (DEXTROPROPOXYPHENE NAPSILATE, PARACETAMOL) [Concomitant]
  5. PREDNISONE TAB [Concomitant]
  6. TOPROL-XL [Concomitant]
  7. VESICARE [Concomitant]
  8. LESCOL XL [Concomitant]
  9. FEMARA [Suspect]
     Dosage: 2.5 MG, DAILY, ORAL
     Route: 048
     Dates: start: 20100611
  10. ASPIRIN [Concomitant]

REACTIONS (5)
  - SWELLING [None]
  - HYPERTENSION [None]
  - ARTHRITIS [None]
  - WALKING AID USER [None]
  - ALOPECIA [None]
